FAERS Safety Report 23402234 (Version 1)
Quarter: 2024Q1

REPORT INFORMATION
  Report Type: Spontaneous
  Country: US (occurrence: US)
  Receive Date: 20240115
  Receipt Date: 20240115
  Transmission Date: 20240410
  Serious: Yes (Other)
  Sender: FDA-Public Use
  Company Number: US-PFIZER INC-PV202400003872

PATIENT
  Age: 28 Year
  Sex: Female

DRUGS (6)
  1. TRAZIMERA [Suspect]
     Active Substance: TRASTUZUMAB-QYYP
     Indication: Breast cancer female
     Dosage: UNK
     Dates: start: 20231027
  2. TRASTUZUMAB [Concomitant]
     Active Substance: TRASTUZUMAB
  3. CARBOPLATIN [Concomitant]
     Active Substance: CARBOPLATIN
  4. PERJETA [Concomitant]
     Active Substance: PERTUZUMAB
  5. TAXOTERE [Concomitant]
     Active Substance: DOCETAXEL
  6. ONTRUZANT [Concomitant]
     Active Substance: TRASTUZUMAB-DTTB

REACTIONS (7)
  - Hypokalaemia [Unknown]
  - Hyperglycaemia [Unknown]
  - Follicular disorder [Unknown]
  - Cellulitis [Unknown]
  - Abdominal distension [Unknown]
  - Decreased appetite [Unknown]
  - Pruritus [Unknown]
